FAERS Safety Report 7795512-7 (Version None)
Quarter: 2011Q4

REPORT INFORMATION
  Report Type: 
  Country: None (occurrence: None)
  Receive Date: 20111004
  Receipt Date: 20110205
  Transmission Date: 20120403
  Serious: No
  Sender: FDA-Public Use
  Company Number: US-BAYER-2011-012431

PATIENT
  Sex: Male

DRUGS (2)
  1. YOHIMBE [Concomitant]
  2. LEVITRA [Suspect]

REACTIONS (1)
  - HEADACHE [None]
